FAERS Safety Report 9557440 (Version 2)
Quarter: 2013Q3

REPORT INFORMATION
  Report Type: Spontaneous
  Country: GB (occurrence: None)
  Receive Date: 20130924
  Receipt Date: 20130925
  Transmission Date: 20140515
  Serious: Yes (Death, Hospitalization)
  Sender: FDA-Public Use
  Company Number: GER/UKI/13/0034530

PATIENT
  Age: 69 Year
  Sex: Female

DRUGS (18)
  1. SERTRALINE [Suspect]
     Indication: PRODUCT USED FOR UNKNOWN INDICATION
     Dosage: 1 IN 1 D
     Route: 048
     Dates: start: 20130802, end: 20130818
  2. BISOPROLOL (BISOPROLOL) [Concomitant]
  3. CETIRIZINE [Concomitant]
  4. DIGOXIN [Concomitant]
  5. DIHYDROCODEINE [Concomitant]
  6. DOCUSATE [Concomitant]
  7. FERROUS FUMARATE [Concomitant]
  8. FOLIC ACID [Concomitant]
  9. LACTULOSE [Concomitant]
  10. LEVOTHYROXINE [Concomitant]
  11. METHOTREXATE [Concomitant]
  12. MOVELAT [Concomitant]
  13. PARACETAMOL [Concomitant]
  14. PREDNISOLONE [Concomitant]
  15. RABEPRAZOLE [Concomitant]
  16. SENNA (SENNA ALEXANDRINA) [Concomitant]
  17. SIMVASTATIN [Concomitant]
  18. WARFARIN [Concomitant]

REACTIONS (8)
  - Toxic epidermal necrolysis [None]
  - General physical health deterioration [None]
  - Cardiovascular disorder [None]
  - Atrial fibrillation [None]
  - Dehydration [None]
  - Sepsis [None]
  - Lower respiratory tract infection [None]
  - Multi-organ failure [None]
